FAERS Safety Report 5894356-0 (Version None)
Quarter: 2008Q3

REPORT INFORMATION
  Report Type: 
  Country: None (occurrence: None)
  Receive Date: 20080922
  Receipt Date: 20080908
  Transmission Date: 20090109
  Serious: Yes (Other)
  Sender: FDA-Public Use
  Company Number: 237837J08USA

PATIENT
  Age: 32 Year
  Sex: Female

DRUGS (6)
  1. REBIF [Suspect]
     Indication: MULTIPLE SCLEROSIS
     Dosage: 44 MCG, 3 IN 1 WEEKS, SUBCUTANEOUS
     Route: 058
     Dates: start: 20070819
  2. ALEVE (CAPLET) [Concomitant]
  3. TRAMADOL HCL [Concomitant]
  4. TOPAMAX [Concomitant]
  5. EFFEXOR [Concomitant]
  6. XANAX [Concomitant]

REACTIONS (5)
  - CONVULSION [None]
  - FALL [None]
  - HEADACHE [None]
  - MEMORY IMPAIRMENT [None]
  - TREATMENT NONCOMPLIANCE [None]
